FAERS Safety Report 23088993 (Version 2)
Quarter: 2023Q4

REPORT INFORMATION
  Report Type: Report from Study
  Country: TH (occurrence: TH)
  Receive Date: 20231020
  Receipt Date: 20231031
  Transmission Date: 20240109
  Serious: Yes (Death, Other)
  Sender: FDA-Public Use
  Company Number: TH-PFIZER INC-202300331153

PATIENT

DRUGS (7)
  1. IRINOTECAN HYDROCHLORIDE [Suspect]
     Active Substance: IRINOTECAN HYDROCHLORIDE
     Indication: Colorectal cancer metastatic
     Dosage: ON DAY 1
  2. FLUOROURACIL [Suspect]
     Active Substance: FLUOROURACIL
     Indication: Colorectal cancer metastatic
     Dosage: ON DAY 1
     Route: 040
  3. FLUOROURACIL [Suspect]
     Active Substance: FLUOROURACIL
     Dosage: 22-HOUR INFUSION IMMEDIATELY AFTER A 5FU BOLUS, ON DAY 1
  4. FLUOROURACIL [Suspect]
     Active Substance: FLUOROURACIL
     Dosage: ON DAY 2
     Route: 040
  5. FLUOROURACIL [Suspect]
     Active Substance: FLUOROURACIL
     Dosage: 22-HOUR INFUSION IMMEDIATELY AFTER A 5FU BOLUS, ON DAY 2
  6. LEUCOVORIN CALCIUM [Suspect]
     Active Substance: LEUCOVORIN CALCIUM
     Indication: Colorectal cancer metastatic
     Dosage: AS A 2-HOUR INFUSION ON DAY 1, CYCLIC
  7. LEUCOVORIN CALCIUM [Suspect]
     Active Substance: LEUCOVORIN CALCIUM
     Dosage: AS A 2-HOUR INFUSION ON DAY 2, CYCLIC

REACTIONS (1)
  - Febrile neutropenia [Fatal]
